FAERS Safety Report 5803157-0 (Version None)
Quarter: 2008Q3

REPORT INFORMATION
  Report Type: 
  Country: None (occurrence: None)
  Receive Date: 20080708
  Receipt Date: 20080624
  Transmission Date: 20090109
  Serious: Yes (Hospitalization)
  Sender: FDA-Public Use
  Company Number: US-ELI_LILLY_AND_COMPANY-US200607001248

PATIENT
  Age: 37 Year
  Sex: Male

DRUGS (4)
  1. CYMBALTA [Suspect]
     Indication: DEPRESSION
     Dosage: UNK MG, UNK
     Route: 048
     Dates: start: 20050101
  2. CYMBALTA [Suspect]
     Dosage: UNK MG, UNK
     Route: 048
     Dates: start: 20060101, end: 20060101
  3. ABILIFY [Concomitant]
     Indication: BIPOLAR DISORDER
     Dosage: UNK MG, UNK
  4. ALCOHOL [Concomitant]
     Dosage: UNK, UNKNOWN
     Route: 048

REACTIONS (4)
  - ACUTE HEPATIC FAILURE [None]
  - MEAN CELL HAEMOGLOBIN [None]
  - MEAN CELL VOLUME ABNORMAL [None]
  - RENAL FAILURE [None]
